FAERS Safety Report 19397627 (Version 1)
Quarter: 2021Q2

REPORT INFORMATION
  Report Type: Spontaneous
  Country: CN (occurrence: CN)
  Receive Date: 20210610
  Receipt Date: 20210610
  Transmission Date: 20210717
  Serious: Yes (Hospitalization, Disabling)
  Sender: FDA-Public Use
  Company Number: CN-ASTRAZENECA-2021A510727

PATIENT
  Age: 22854 Day
  Sex: Male
  Weight: 68 kg

DRUGS (3)
  1. ASPIRIN. [Suspect]
     Active Substance: ASPIRIN
     Indication: CHEST DISCOMFORT
     Route: 048
     Dates: start: 20190124, end: 20190128
  2. BRILINTA [Suspect]
     Active Substance: TICAGRELOR
     Indication: CHEST DISCOMFORT
     Route: 048
     Dates: start: 20190128, end: 20190131
  3. SODIUM CHLORIDE/TIROFIBAN HYDROCHLORIDE [Suspect]
     Active Substance: TIROFIBAN HYDROCHLORIDE
     Indication: CHEST DISCOMFORT
     Route: 055
     Dates: start: 20190126, end: 20190127

REACTIONS (4)
  - Nausea [Unknown]
  - Haematemesis [Unknown]
  - Retching [Unknown]
  - Haematochezia [Unknown]

NARRATIVE: CASE EVENT DATE: 20190127
